FAERS Safety Report 13180748 (Version 1)
Quarter: 2017Q1

REPORT INFORMATION
  Report Type: Spontaneous
  Country: US (occurrence: US)
  Receive Date: 20170202
  Receipt Date: 20170202
  Transmission Date: 20170428
  Serious: No
  Sender: FDA-Public Use
  Company Number: US-SMITH AND NEPHEW, INC-2016SMT00556

PATIENT
  Age: 67 Year
  Sex: Female
  Weight: 66.67 kg

DRUGS (3)
  1. UNSPECIFIED DIABETIC MEDICATION [Concomitant]
     Dosage: UNK
  2. REGRANEX [Suspect]
     Active Substance: BECAPLERMIN
     Indication: SKIN ULCER
     Dosage: UNK UNK, 1X/DAY
     Route: 061
     Dates: start: 20160621
  3. VITAMIN D [Concomitant]
     Active Substance: CHOLECALCIFEROL
     Dosage: 50000 U, 1X/WEEK

REACTIONS (4)
  - Pruritus [Recovering/Resolving]
  - Application site dryness [Unknown]
  - Application site pain [Not Recovered/Not Resolved]
  - Incorrect drug administration duration [Recovered/Resolved]

NARRATIVE: CASE EVENT DATE: 20160621
